FAERS Safety Report 7796616-5 (Version None)
Quarter: 2011Q4

REPORT INFORMATION
  Report Type: 
  Country: None (occurrence: None)
  Receive Date: 20111005
  Receipt Date: 20110204
  Transmission Date: 20120403
  Serious: No
  Sender: FDA-Public Use
  Company Number: US-BAYER-2011-012433

PATIENT
  Age: 40 Year
  Sex: Male

DRUGS (1)
  1. LEVITRA [Suspect]
     Indication: PREMATURE EJACULATION
     Dosage: 10 MG, UNK
     Route: 048

REACTIONS (3)
  - PREMATURE EJACULATION [None]
  - SEMEN VOLUME INCREASED [None]
  - SEMEN DISCOLOURATION [None]
